FAERS Safety Report 8977605 (Version 2)
Quarter: 2013Q1

REPORT INFORMATION
  Report Type: Spontaneous
  Country: US (occurrence: US)
  Receive Date: 20121220
  Receipt Date: 20130219
  Transmission Date: 20140127
  Serious: Yes (Death, Life-Threatening, Hospitalization, Disabling, Other)
  Sender: FDA-Public Use
  Company Number: US-GLAXOSMITHKLINE-A1005939A

PATIENT
  Age: 72 Year
  Sex: Male
  Weight: 131.3 kg

DRUGS (1)
  1. VOTRIENT [Suspect]
     Indication: RENAL CANCER
     Dosage: 800MG PER DAY
     Route: 065
     Dates: start: 201211, end: 20121202

REACTIONS (17)
  - Cerebrovascular accident [Not Recovered/Not Resolved]
  - Brain operation [Not Recovered/Not Resolved]
  - Encephalopathy [Fatal]
  - Craniotomy [Fatal]
  - Intracranial tumour haemorrhage [Unknown]
  - Subarachnoid haemorrhage [Unknown]
  - Cerebral atrophy [Unknown]
  - Metastases to central nervous system [Unknown]
  - Pneumocephalus [Unknown]
  - Brain oedema [Unknown]
  - Brain neoplasm [Unknown]
  - Dyspnoea [Unknown]
  - Ischaemia [Unknown]
  - Atelectasis [Unknown]
  - Lung consolidation [Unknown]
  - Thrombosis [Unknown]
  - Subcutaneous emphysema [Unknown]
